FAERS Safety Report 4893623-7 (Version None)
Quarter: 2006Q1

REPORT INFORMATION
  Report Type: 
  Country: None (occurrence: None)
  Receive Date: 20060127
  Receipt Date: 20051221
  Transmission Date: 20060701
  Serious: Yes (Other)
  Sender: FDA-Public Use
  Company Number: US-SANOFI-SYNTHELABO-A03200504387

PATIENT
  Sex: Male

DRUGS (1)
  1. AMBIEN CR [Suspect]
     Indication: INSOMNIA
     Route: 048

REACTIONS (4)
  - FALL [None]
  - RIB FRACTURE [None]
  - SOMNOLENCE [None]
  - UPPER LIMB FRACTURE [None]
